FAERS Safety Report 22200149 (Version 1)
Quarter: 2023Q2

REPORT INFORMATION
  Report Type: Spontaneous
  Country: GB (occurrence: GB)
  Receive Date: 20230412
  Receipt Date: 20230412
  Transmission Date: 20230722
  Serious: Yes (Other)
  Sender: FDA-Public Use
  Company Number: None

PATIENT
  Age: 85 Year
  Sex: Female
  Weight: 57.3 kg

DRUGS (16)
  1. XARELTO [Suspect]
     Active Substance: RIVAROXABAN
     Indication: Cough
     Dosage: 15 MG, UNK
     Route: 048
  2. BISACODYL [Concomitant]
     Active Substance: BISACODYL
     Dosage: 5 MG, QD
     Dates: start: 20180907
  3. BISACODYL [Concomitant]
     Active Substance: BISACODYL
     Dosage: 5 MG, UNK
     Dates: start: 20180907
  4. ORAMORPH SR SUSTAINED RELEASE [Concomitant]
     Active Substance: MORPHINE SULFATE
     Dosage: UNK UNK, PRN
     Route: 048
     Dates: start: 20181005
  5. MAGNESIUM HYDROXIDE [Concomitant]
     Active Substance: MAGNESIUM HYDROXIDE
     Dosage: 25 ML, QD
     Route: 048
     Dates: start: 20180726
  6. MAGNESIUM HYDROXIDE [Concomitant]
     Active Substance: MAGNESIUM HYDROXIDE
     Dosage: 25 ML, UNK
     Route: 048
     Dates: start: 20180726
  7. ZOPICLONE [Concomitant]
     Active Substance: ZOPICLONE
     Dosage: 3.75 MG, PRN
     Dates: start: 20180813
  8. ZOPICLONE [Concomitant]
     Active Substance: ZOPICLONE
     Dosage: 3.75 MG, UNK
     Dates: start: 20180813
  9. IBUPROFEN [Concomitant]
     Active Substance: IBUPROFEN
     Dosage: 3 DF, QD
     Dates: start: 20181001
  10. IBUPROFEN [Concomitant]
     Active Substance: IBUPROFEN
     Dosage: 3 DF, UNK
     Dates: start: 20181001
  11. LACTULOSE [Concomitant]
     Active Substance: LACTULOSE
     Dosage: 30 ML, QD
     Route: 048
     Dates: start: 20180725
  12. COCODAMOL [Concomitant]
     Active Substance: ACETAMINOPHEN\CODEINE PHOSPHATE
     Dosage: UNK
  13. OMEPRAZOLE [Concomitant]
     Active Substance: OMEPRAZOLE
     Dosage: 20 MG, QD
     Dates: start: 20180813
  14. OMEPRAZOLE [Concomitant]
     Active Substance: OMEPRAZOLE
     Dosage: 20 MG, UNK
     Dates: start: 20180813
  15. CALCIUM CARBONATE\SODIUM ALGINATE\SODIUM BICARBONATE [Concomitant]
     Active Substance: CALCIUM CARBONATE\SODIUM ALGINATE\SODIUM BICARBONATE
     Dosage: 10 ML, UNK
  16. INCRUSE ELLIPTA [Concomitant]
     Active Substance: UMECLIDINIUM BROMIDE
     Dosage: 55 UG, UNK
     Route: 055
     Dates: start: 20180813

REACTIONS (1)
  - Iron deficiency anaemia [Recovering/Resolving]

NARRATIVE: CASE EVENT DATE: 20181003
